FAERS Safety Report 7749946-7 (Version None)
Quarter: 2011Q3

REPORT INFORMATION
  Report Type: 
  Country: None (occurrence: None)
  Receive Date: 20110912
  Receipt Date: 20110831
  Transmission Date: 20111222
  Serious: Yes (Hospitalization)
  Sender: FDA-Public Use
  Company Number: DSA_47424_2011

PATIENT
  Age: 64 Year
  Sex: Male

DRUGS (16)
  1. DIGOXIN [Concomitant]
  2. METFORMIN HCL [Concomitant]
  3. ASPIRIN [Concomitant]
  4. GLIPIZIDE [Concomitant]
  5. IPRATROPIUM BROMIDE [Concomitant]
  6. MOMETASONE FUROATE [Concomitant]
  7. OMEPRAZOLE [Concomitant]
  8. AMOXICILLIN [Concomitant]
  9. CLARITHROMYCIN [Concomitant]
  10. POLYETHYLENE GLYCOL [Concomitant]
  11. PRAVASTATIN [Concomitant]
  12. DOCUSATE SODIUM [Concomitant]
  13. DILTIAZEM HCL [Suspect]
     Indication: ATRIAL FIBRILLATION
     Dosage: (30 MG 1X/6  HOURS ORAL), (60 MG 1X/6 HOURS ORAL), (120 MG 1X/6 HOURS ORAL)
     Route: 048
     Dates: start: 20100101, end: 20100101
  14. DILTIAZEM HCL [Suspect]
     Indication: ATRIAL FIBRILLATION
     Dosage: (30 MG 1X/6  HOURS ORAL), (60 MG 1X/6 HOURS ORAL), (120 MG 1X/6 HOURS ORAL)
     Route: 048
     Dates: start: 20100101, end: 20100101
  15. DILTIAZEM HCL [Suspect]
     Indication: ATRIAL FIBRILLATION
     Dosage: (30 MG 1X/6  HOURS ORAL), (60 MG 1X/6 HOURS ORAL), (120 MG 1X/6 HOURS ORAL)
     Route: 048
     Dates: start: 20100101, end: 20100101
  16. FUROSEMIDE [Concomitant]

REACTIONS (7)
  - MELAENA [None]
  - ABDOMINAL PAIN [None]
  - UPPER GASTROINTESTINAL HAEMORRHAGE [None]
  - ILEUS PARALYTIC [None]
  - EPISTAXIS [None]
  - ATRIAL FIBRILLATION [None]
  - INTESTINAL DILATATION [None]
